FAERS Safety Report 13786714 (Version 1)
Quarter: 2017Q3

REPORT INFORMATION
  Report Type: Spontaneous
  Country: US (occurrence: US)
  Receive Date: 20170725
  Receipt Date: 20170725
  Transmission Date: 20171127
  Serious: No
  Sender: FDA-Public Use
  Company Number: US-UNITED THERAPEUTICS-UNT-2017-001985

PATIENT
  Sex: Male

DRUGS (3)
  1. AUGMENTIN [Suspect]
     Active Substance: AMOXICILLIN\CLAVULANATE POTASSIUM
     Indication: INFECTION
  2. REMODULIN [Suspect]
     Active Substance: TREPROSTINIL
     Indication: PULMONARY ARTERIAL HYPERTENSION
     Dosage: 0.12 ?G/KG, Q48H
     Route: 041
     Dates: start: 20150422
  3. AUGMENTIN [Suspect]
     Active Substance: AMOXICILLIN\CLAVULANATE POTASSIUM
     Indication: BACTEROIDES INFECTION
     Route: 065

REACTIONS (4)
  - Infection [Unknown]
  - Bacteroides infection [Unknown]
  - Clostridium difficile infection [Unknown]
  - Dysbacteriosis [Unknown]

NARRATIVE: CASE EVENT DATE: 201702
